FAERS Safety Report 21955691 (Version 11)
Quarter: 2023Q4

REPORT INFORMATION
  Report Type: Other
  Country: IN (occurrence: None)
  Receive Date: 20230206
  Receipt Date: 20231017
  Transmission Date: 20240110
  Serious: Yes (Other)
  Sender: FDA-Public Use
  Company Number: IN-ROCHE-2716986

PATIENT
  Age: 62 Year
  Sex: Female

DRUGS (2)
  1. PERJETA [Suspect]
     Active Substance: PERTUZUMAB
     Indication: Breast cancer metastatic
     Dosage: FORMULATION: INJECTION
     Route: 042
     Dates: start: 20180427
  2. PERJETA [Suspect]
     Active Substance: PERTUZUMAB
     Dosage: FORMULATION: INJECTION
     Route: 042

REACTIONS (7)
  - Coronavirus infection [Unknown]
  - Vascular access site infection [Unknown]
  - Pyrexia [Unknown]
  - COVID-19 [Unknown]
  - Nasopharyngitis [Unknown]
  - Cough [Unknown]
  - Off label use [Unknown]

NARRATIVE: CASE EVENT DATE: 20180427
